FAERS Safety Report 8173474-0 (Version None)
Quarter: 2012Q1

REPORT INFORMATION
  Report Type: 
  Country: None (occurrence: None)
  Receive Date: 20120228
  Receipt Date: 20120216
  Transmission Date: 20120608
  Serious: Yes (Death, Hospitalization, Other)
  Sender: FDA-Public Use
  Company Number: ACO_29421_2012

PATIENT
  Age: 64 Year
  Sex: Female
  Weight: 54.4 kg

DRUGS (7)
  1. AMPYRA [Suspect]
     Indication: MUSCLE SPASTICITY
     Dosage: 10 MG, BID, ORAL
     Route: 048
     Dates: start: 20100101, end: 20111101
  2. PROVIGIL [Concomitant]
  3. BACLOFEN [Concomitant]
  4. NEURONTIN [Concomitant]
  5. BETASERON [Concomitant]
  6. CLONAZEPAM [Concomitant]
  7. ZANAFLEX [Concomitant]

REACTIONS (5)
  - PNEUMONIA [None]
  - COGNITIVE DISORDER [None]
  - GASTROINTESTINAL TUBE INSERTION [None]
  - MULTIPLE SCLEROSIS [None]
  - DYSPHONIA [None]
